FAERS Safety Report 9082392 (Version 2)
Quarter: 2013Q1

REPORT INFORMATION
  Report Type: Spontaneous
  Country: US (occurrence: US)
  Receive Date: 20130218
  Receipt Date: 20130311
  Transmission Date: 20140127
  Serious: No
  Sender: FDA-Public Use
  Company Number: US-PFIZER INC-2013059076

PATIENT
  Age: 65 Year
  Sex: Female

DRUGS (6)
  1. SUTENT [Suspect]
     Indication: RENAL CELL CARCINOMA
     Dosage: 50 MG, CYCLIC, 4 WKS ON/2 WKS OFF
     Route: 048
     Dates: start: 20121112
  2. SUTENT [Suspect]
     Dosage: 50 MG, CYCLIC, 4 WKS ON/2 WKS OFF
     Dates: start: 20121123
  3. SUTENT [Suspect]
     Dosage: 50 MG, CYCLIC, 2 WKS ON/2 WKS OFF
     Dates: start: 20130131
  4. AMLODIPINE [Concomitant]
     Dosage: UNK
  5. TYLENOL [Concomitant]
     Dosage: UNK, AS NEEDED
  6. IBUPROFEN [Concomitant]
     Dosage: UNK, AS NEEDED

REACTIONS (7)
  - Blood pressure increased [Recovered/Resolved]
  - Blister [Unknown]
  - Hyperkeratosis [Unknown]
  - Oropharyngeal pain [Unknown]
  - Dysphonia [Not Recovered/Not Resolved]
  - Furuncle [Not Recovered/Not Resolved]
  - Palmar-plantar erythrodysaesthesia syndrome [Recovering/Resolving]
